FAERS Safety Report 9397360 (Version 1)
Quarter: 2013Q3

REPORT INFORMATION
  Report Type: Spontaneous
  Country: US (occurrence: None)
  Receive Date: 20130711
  Receipt Date: 20130711
  Transmission Date: 20140515
  Serious: Yes (Life-Threatening)
  Sender: FDA-Public Use
  Company Number: None

PATIENT
  Age: 56 Year
  Sex: Male
  Weight: 90.9 kg

DRUGS (2)
  1. CLOPIDOGREL [Suspect]
     Indication: TRANSIENT ISCHAEMIC ATTACK
     Dosage: 75 MG  EVERY DAY PO
     Route: 048
     Dates: start: 20130227, end: 20130626
  2. ASPIRIN [Suspect]
     Dosage: MG EVERY DAY PO
     Route: 048

REACTIONS (1)
  - Subdural haematoma [None]
